FAERS Safety Report 20100620 (Version 2)
Quarter: 2021Q4

REPORT INFORMATION
  Report Type: Spontaneous
  Country: FR (occurrence: FR)
  Receive Date: 20211123
  Receipt Date: 20211129
  Transmission Date: 20220304
  Serious: Yes (Hospitalization)
  Sender: FDA-Public Use
  Company Number: None

PATIENT
  Age: 84 Year
  Sex: Male

DRUGS (2)
  1. OFLOXACIN [Interacting]
     Active Substance: OFLOXACIN
     Indication: Osteitis
     Dosage: 200 MILLIGRAM, Q3D, 3 TIMES A DAY
     Route: 048
     Dates: start: 20210716, end: 20210721
  2. CLINDAMYCIN [Suspect]
     Active Substance: CLINDAMYCIN
     Indication: Osteitis
     Dosage: 600 MILLIGRAM, Q3D, 3 TIMES A DAY
     Route: 048
     Dates: start: 20210716, end: 20210721

REACTIONS (2)
  - Vascular purpura [Recovered/Resolved]
  - Drug interaction [Unknown]

NARRATIVE: CASE EVENT DATE: 20210721
